FAERS Safety Report 9016199 (Version 2)
Quarter: 2013Q1

REPORT INFORMATION
  Report Type: Report from Study
  Country: US (occurrence: US)
  Receive Date: 20130116
  Receipt Date: 20130329
  Transmission Date: 20140127
  Serious: Yes (Other)
  Sender: FDA-Public Use
  Company Number: US-TEVA-380662USA

PATIENT
  Age: 22 Year
  Sex: Female
  Weight: 53.57 kg

DRUGS (2)
  1. CLARAVIS [Suspect]
     Dosage: 40 MILLIGRAM DAILY;
     Dates: start: 2012, end: 20130101
  2. ORAL CONTRACEPTIVE NOS [Concomitant]

REACTIONS (1)
  - Unintended pregnancy [Unknown]
